FAERS Safety Report 14375690 (Version 1)
Quarter: 2018Q1

REPORT INFORMATION
  Report Type: Spontaneous
  Country: CZ (occurrence: CZ)
  Receive Date: 20180111
  Receipt Date: 20180111
  Transmission Date: 20180509
  Serious: Yes (Hospitalization)
  Sender: FDA-Public Use
  Company Number: CZ-MYLANLABS-2018M1002325

PATIENT
  Age: 51 Year
  Sex: Male

DRUGS (3)
  1. SERTRALINE [Suspect]
     Active Substance: SERTRALINE HYDROCHLORIDE
     Indication: DEPRESSION
     Dosage: UNK
  2. ACAMPROSATE [Concomitant]
     Active Substance: ACAMPROSATE
     Indication: DEPRESSION
     Dosage: UNK
  3. OXAZEPAM. [Concomitant]
     Active Substance: OXAZEPAM
     Indication: DEPRESSION
     Dosage: UNK

REACTIONS (5)
  - Suicidal ideation [Recovering/Resolving]
  - Mood altered [Recovering/Resolving]
  - Withdrawal syndrome [Recovered/Resolved]
  - Somnolence [Recovering/Resolving]
  - General physical health deterioration [Unknown]
